FAERS Safety Report 7230080-X (Version None)
Quarter: 2011Q1

REPORT INFORMATION
  Report Type: 
  Country: None (occurrence: None)
  Receive Date: 20110118
  Receipt Date: 20110105
  Transmission Date: 20110831
  Serious: No
  Sender: FDA-Public Use
  Company Number: US-BIOGENIDEC-2010BI038192

PATIENT
  Age: 58 Year
  Sex: Female

DRUGS (3)
  1. TYSABRI [Suspect]
     Route: 042
     Dates: start: 20070201, end: 20090522
  2. TYSABRI [Suspect]
     Route: 042
     Dates: start: 20100322
  3. TYSABRI [Suspect]
     Indication: MULTIPLE SCLEROSIS
     Route: 042
     Dates: start: 20050131, end: 20050131

REACTIONS (3)
  - PAIN [None]
  - DRUG EFFECT DECREASED [None]
  - HYPERHIDROSIS [None]
